FAERS Safety Report 7043300-1 (Version None)
Quarter: 2010Q4

REPORT INFORMATION
  Report Type: 
  Country: None (occurrence: None)
  Receive Date: 20101013
  Receipt Date: 20100121
  Transmission Date: 20110411
  Serious: No
  Sender: FDA-Public Use
  Company Number: US-ASTRAZENECA-2010SE03352

PATIENT
  Age: 84 Year
  Sex: Female

DRUGS (4)
  1. SYMBICORT [Suspect]
     Dosage: 80/4.5 MCG UNKNOWN FREQUENCY
     Route: 055
  2. ZIAC [Concomitant]
  3. ZOLOFT [Concomitant]
  4. PEPCID [Concomitant]

REACTIONS (3)
  - CHAPPED LIPS [None]
  - LIP EXFOLIATION [None]
  - STOMATITIS [None]
